FAERS Safety Report 23631103 (Version 3)
Quarter: 2024Q3

REPORT INFORMATION
  Report Type: Report from Study
  Country: GB (occurrence: GB)
  Receive Date: 20240314
  Receipt Date: 20240724
  Transmission Date: 20241017
  Serious: Yes (Hospitalization, Other)
  Sender: SANDOZ
  Company Number: GB-SANDOZ-SDZ2024GB027145

PATIENT
  Sex: Male

DRUGS (2)
  1. HYRIMOZ [Suspect]
     Active Substance: ADALIMUMAB-ADAZ
     Dosage: 40 MG, QW/FORMULATION  40MG/0.4ML
     Route: 058
  2. HYRIMOZ [Suspect]
     Active Substance: ADALIMUMAB-ADAZ
     Indication: Crohn^s disease
     Dosage: 40 MG, QW/FORMULATION 40MG/0.8ML
     Route: 058
     Dates: start: 20231206

REACTIONS (4)
  - Loss of consciousness [Recovered/Resolved]
  - Sepsis [Not Recovered/Not Resolved]
  - Urinary tract infection [Unknown]
  - Product prescribing error [Unknown]
